FAERS Safety Report 9289830 (Version 1)
Quarter: 2013Q2

REPORT INFORMATION
  Report Type: Spontaneous
  Country: US (occurrence: US)
  Receive Date: 20130515
  Receipt Date: 20130515
  Transmission Date: 20140414
  Serious: No
  Sender: FDA-Public Use
  Company Number: US-BIOGENIDEC-2013BI041213

PATIENT
  Age: 57 Year
  Sex: Female

DRUGS (3)
  1. AVONEX [Suspect]
     Indication: MULTIPLE SCLEROSIS
     Route: 030
     Dates: start: 200102
  2. AVONEX [Suspect]
     Indication: MULTIPLE SCLEROSIS
     Route: 030
     Dates: start: 20130412
  3. AVONEX [Suspect]
     Indication: MULTIPLE SCLEROSIS
     Route: 030
     Dates: start: 20130504

REACTIONS (6)
  - Back pain [Not Recovered/Not Resolved]
  - Dysuria [Not Recovered/Not Resolved]
  - Hypoaesthesia [Unknown]
  - Dry mouth [Not Recovered/Not Resolved]
  - Sensation of heaviness [Unknown]
  - Pain in extremity [Unknown]
